FAERS Safety Report 12061304 (Version 1)
Quarter: 2016Q1

REPORT INFORMATION
  Report Type: Spontaneous
  Country: US (occurrence: US)
  Receive Date: 20160210
  Receipt Date: 20160210
  Transmission Date: 20160526
  Serious: No
  Sender: FDA-Public Use
  Company Number: US-ALLERGAN-1502901US

PATIENT
  Age: 67 Year
  Sex: Female
  Weight: 56.24 kg

DRUGS (5)
  1. BOTOX COSMETIC [Suspect]
     Active Substance: ONABOTULINUMTOXINA
     Indication: SKIN WRINKLING
  2. BOTOX COSMETIC [Suspect]
     Active Substance: ONABOTULINUMTOXINA
     Indication: SKIN WRINKLING
     Dosage: UNK, SINGLE
     Route: 030
     Dates: start: 20140130, end: 20140130
  3. HORMONES [Concomitant]
     Active Substance: UNSPECIFIED INGREDIENT
  4. JUVEDERM [Suspect]
     Active Substance: HYALURONIC ACID
     Indication: PRODUCT USED FOR UNKNOWN INDICATION
     Dosage: UNK, SINGLE
     Dates: start: 20140130, end: 20140130
  5. ARMOURTHYROID [Concomitant]

REACTIONS (4)
  - Skin wrinkling [Unknown]
  - Injection site rash [Recovered/Resolved]
  - Injection site bruising [Recovered/Resolved]
  - Drug ineffective [Unknown]

NARRATIVE: CASE EVENT DATE: 20140130
